FAERS Safety Report 5897124-9 (Version None)
Quarter: 2008Q3

REPORT INFORMATION
  Report Type: 
  Country: None (occurrence: None)
  Receive Date: 20080924
  Receipt Date: 20080519
  Transmission Date: 20090109
  Serious: Yes (Other)
  Sender: FDA-Public Use
  Company Number: US-ASTRAZENECA-2008UW10401

PATIENT
  Age: 549 Month
  Sex: Female
  Weight: 115.2 kg

DRUGS (8)
  1. SEROQUEL [Suspect]
     Indication: BIPOLAR DISORDER
     Dosage: 100-500 MG
     Route: 048
     Dates: start: 20020701
  2. SEROQUEL [Suspect]
     Indication: DEPRESSION
     Dosage: 100-500 MG
     Route: 048
     Dates: start: 20020701
  3. GEODON [Concomitant]
     Dates: start: 20080211
  4. RISPERDAL [Concomitant]
     Dates: start: 20000101, end: 20020101
  5. RISPERDAL [Concomitant]
     Dates: start: 20080211
  6. CLONAZEPAM [Concomitant]
  7. VALIUM [Concomitant]
  8. XANAX [Concomitant]

REACTIONS (4)
  - BLOOD CHOLESTEROL INCREASED [None]
  - DIABETES MELLITUS [None]
  - HYPERTENSION [None]
  - PANCREATITIS [None]
